FAERS Safety Report 20881701 (Version 2)
Quarter: 2022Q3

REPORT INFORMATION
  Report Type: Report from Study
  Country: BE (occurrence: BE)
  Receive Date: 20220527
  Receipt Date: 20220707
  Transmission Date: 20221026
  Serious: Yes (Other)
  Sender: FDA-Public Use
  Company Number: BE-BEH-2022145138

PATIENT
  Sex: Female

DRUGS (3)
  1. AZITHROMYCIN [Interacting]
     Active Substance: AZITHROMYCIN
     Dosage: UNK
  2. HIZENTRA [Interacting]
     Active Substance: HUMAN IMMUNOGLOBULIN G
     Dosage: 8 G, WEEKLY
     Route: 058
  3. HIZENTRA [Interacting]
     Active Substance: HUMAN IMMUNOGLOBULIN G
     Dosage: 8 G, WEEKLY
     Route: 058

REACTIONS (6)
  - Drug interaction [Unknown]
  - Palpitations [Unknown]
  - Fall [Unknown]
  - Hypoaesthesia oral [Unknown]
  - Peripheral swelling [Unknown]
  - Therapy interrupted [Unknown]
